FAERS Safety Report 4526125-8 (Version None)
Quarter: 2004Q4

REPORT INFORMATION
  Report Type: 
  Country: None (occurrence: None)
  Receive Date: 20041213
  Receipt Date: 20041213
  Transmission Date: 20050328
  Serious: Yes (Hospitalization)
  Sender: FDA-Public Use
  Company Number: None

PATIENT

DRUGS (10)
  1. CARBOPLATIN [Suspect]
  2. GEMCITABINE [Suspect]
  3. FENTANYL [Concomitant]
  4. CELEBREX [Concomitant]
  5. MULTI-VITAMIN [Concomitant]
  6. COMPAZINE [Concomitant]
  7. SENOKOT [Concomitant]
  8. PRILOSEC [Concomitant]
  9. DILAUDID [Concomitant]
  10. LOVENOX [Concomitant]

REACTIONS (5)
  - ANAEMIA [None]
  - DRUG INEFFECTIVE [None]
  - FEMUR FRACTURE [None]
  - NAUSEA [None]
  - OEDEMA PERIPHERAL [None]
